FAERS Safety Report 10089044 (Version 1)
Quarter: 2014Q2

REPORT INFORMATION
  Report Type: Spontaneous
  Country: US (occurrence: None)
  Receive Date: 20140418
  Receipt Date: 20140418
  Transmission Date: 20141212
  Serious: No
  Sender: FDA-Public Use
  Company Number: None

PATIENT
  Age: 63 Year
  Sex: Female
  Weight: 74.39 kg

DRUGS (4)
  1. METFORMIN HYDROCHLORIDE [Suspect]
     Indication: DIABETES MELLITUS
     Dosage: HS.
     Route: 048
     Dates: start: 20140310, end: 20140402
  2. LISINOPRIL [Suspect]
  3. NONI JUICE [Concomitant]
  4. ALOE GOLD HERBAL JUICE [Concomitant]

REACTIONS (5)
  - Myalgia [None]
  - Muscle spasms [None]
  - Abdominal pain upper [None]
  - Chills [None]
  - Fatigue [None]
